FAERS Safety Report 5910783-7 (Version None)
Quarter: 2008Q4

REPORT INFORMATION
  Report Type: 
  Country: None (occurrence: None)
  Receive Date: 20081007
  Receipt Date: 20080501
  Transmission Date: 20090506
  Serious: No
  Sender: FDA-Public Use
  Company Number: US-ASTRAZENECA-2008UW08989

PATIENT
  Age: 68 Year
  Sex: Female
  Weight: 58.1 kg

DRUGS (1)
  1. ARIMIDEX [Suspect]
     Indication: BREAST CANCER
     Route: 048
     Dates: start: 20071101

REACTIONS (3)
  - BONE DENSITY DECREASED [None]
  - DRY SKIN [None]
  - MUSCULOSKELETAL STIFFNESS [None]
